FAERS Safety Report 5874762-0 (Version None)
Quarter: 2008Q3

REPORT INFORMATION
  Report Type: 
  Country: None (occurrence: None)
  Receive Date: 20080903
  Receipt Date: 20080827
  Transmission Date: 20090109
  Serious: Yes (Hospitalization)
  Sender: FDA-Public Use
  Company Number: 94465

PATIENT
  Age: 68 Year
  Sex: Male

DRUGS (4)
  1. NAPROXEN [Suspect]
     Indication: GOUT
     Dosage: 250 MG/QD/ORAL
     Route: 048
     Dates: end: 20080809
  2. NAPROXEN [Suspect]
     Indication: PAIN
     Dosage: 250 MG/QD/ORAL
     Route: 048
     Dates: end: 20080809
  3. ALLOPURINOL [Concomitant]
  4. COLCHICINE [Concomitant]

REACTIONS (1)
  - MELAENA [None]
